FAERS Safety Report 24035462 (Version 4)
Quarter: 2024Q3

REPORT INFORMATION
  Report Type: Spontaneous
  Country: US (occurrence: US)
  Receive Date: 20240701
  Receipt Date: 20240805
  Transmission Date: 20241017
  Serious: No
  Sender: PFIZER
  Company Number: US-PFIZER INC-PV202400085740

PATIENT
  Age: 94 Year
  Sex: Female

DRUGS (1)
  1. IBRANCE [Suspect]
     Active Substance: PALBOCICLIB
     Dosage: 100 MG

REACTIONS (8)
  - Agitation [Unknown]
  - Tearfulness [Unknown]
  - Obsessive-compulsive disorder [Unknown]
  - Memory impairment [Unknown]
  - Emotional disorder [Unknown]
  - Depressed mood [Unknown]
  - Rash pruritic [Unknown]
  - Neoplasm progression [Unknown]
